FAERS Safety Report 9673886 (Version 1)
Quarter: 2013Q4

REPORT INFORMATION
  Report Type: Report from Study
  Country: US (occurrence: US)
  Receive Date: 20131106
  Receipt Date: 20131106
  Transmission Date: 20140711
  Serious: Yes (Other)
  Sender: FDA-Public Use
  Company Number: US-009507513-1311USA000753

PATIENT
  Age: 53 Year
  Sex: Male
  Weight: 89.34 kg

DRUGS (10)
  1. BOCEPREVIR [Suspect]
     Dosage: 2400MG, TID
     Route: 048
     Dates: start: 20130925
  2. PEGINTRON [Suspect]
     Dosage: 135 MICROGRAM, QW
     Route: 058
     Dates: start: 20130828
  3. REBETOL [Suspect]
     Dosage: 1200MG, BID
     Route: 048
     Dates: start: 20130828
  4. TRUVADA [Concomitant]
  5. RALTEGRAVIR POTASSIUM [Concomitant]
  6. OMEGA-3 MARINE TRIGLYCERIDES [Concomitant]
  7. VITAMINS (UNSPECIFIED) [Concomitant]
  8. NOVOLOG [Concomitant]
  9. INSULIN GLARGINE [Concomitant]
  10. TEA [Concomitant]
     Dosage: 1 CUP DAILY

REACTIONS (1)
  - Thrombocytopenia [Recovered/Resolved]
